FAERS Safety Report 16037946 (Version 1)
Quarter: 2019Q1

REPORT INFORMATION
  Report Type: Spontaneous
  Country: US (occurrence: US)
  Receive Date: 20190305
  Receipt Date: 20190305
  Transmission Date: 20190418
  Serious: Yes (Hospitalization, Other)
  Sender: FDA-Public Use
  Company Number: US-JAZZ-2019-US-002334

PATIENT
  Age: 35 Year
  Sex: Female

DRUGS (1)
  1. XYREM [Suspect]
     Active Substance: SODIUM OXYBATE
     Indication: NARCOLEPSY
     Route: 048

REACTIONS (7)
  - Suicide attempt [Unknown]
  - Overdose [Unknown]
  - Lethargy [Unknown]
  - Blood pressure fluctuation [Unknown]
  - Depressed level of consciousness [Recovered/Resolved]
  - Somnolence [Unknown]
  - Agitation [Recovered/Resolved]
